FAERS Safety Report 10833515 (Version 1)
Quarter: 2015Q1

REPORT INFORMATION
  Report Type: Spontaneous
  Country: US (occurrence: US)
  Receive Date: 20150219
  Receipt Date: 20150219
  Transmission Date: 20150721
  Serious: No
  Sender: FDA-Public Use
  Company Number: US-ASTRAZENECA-2015SE16003

PATIENT
  Age: 59 Year
  Sex: Female
  Weight: 56 kg

DRUGS (7)
  1. CETIRIZINE (CETIRIZINE) [Concomitant]
     Active Substance: CETIRIZINE HYDROCHLORIDE
     Indication: IDIOPATHIC URTICARIA
  2. NEXIUM 24HR [Suspect]
     Active Substance: ESOMEPRAZOLE MAGNESIUM
     Indication: OESOPHAGITIS
     Route: 048
     Dates: start: 20141025, end: 201411
  3. SIMVASTATIN (SIMVASTATIN) [Concomitant]
     Active Substance: SIMVASTATIN
  4. VITAMIN D (ERGOCALCIFEROL) [Concomitant]
     Active Substance: ERGOCALCIFEROL
  5. MAGNESIUM (MAGNESIUM) [Concomitant]
     Active Substance: MAGNESIUM
  6. CINNAMON (CINNAMON) [Concomitant]
  7. NEXIUM 24HR [Suspect]
     Active Substance: ESOMEPRAZOLE MAGNESIUM
     Indication: OESOPHAGITIS
     Route: 048
     Dates: start: 201410, end: 20141024

REACTIONS (3)
  - Drug ineffective for unapproved indication [Recovered/Resolved]
  - Intentional product misuse [Recovered/Resolved]
  - Gastrooesophageal reflux disease [Recovered/Resolved]

NARRATIVE: CASE EVENT DATE: 201410
